FAERS Safety Report 12666942 (Version 1)
Quarter: 2016Q3

REPORT INFORMATION
  Report Type: Spontaneous
  Country: US (occurrence: None)
  Receive Date: 20160818
  Receipt Date: 20160818
  Transmission Date: 20161109
  Serious: Yes (Other)
  Sender: FDA-Public Use
  Company Number: None

PATIENT
  Age: 63 Year
  Sex: Female

DRUGS (6)
  1. KENALOG [Suspect]
     Active Substance: TRIAMCINOLONE ACETONIDE
     Indication: SKIN DISORDER
     Route: 030
     Dates: start: 20160722
  2. DAILY VITAMIN [Concomitant]
     Active Substance: VITAMINS
  3. SOY [Concomitant]
     Active Substance: SOY EXTRACT
  4. KENALOG [Suspect]
     Active Substance: TRIAMCINOLONE ACETONIDE
     Indication: ECZEMA
     Route: 030
     Dates: start: 20160722
  5. FISH OIL [Concomitant]
     Active Substance: FISH OIL
  6. MAGNESIUM [Concomitant]
     Active Substance: MAGNESIUM

REACTIONS (2)
  - Vaginal haemorrhage [None]
  - Muscle spasms [None]

NARRATIVE: CASE EVENT DATE: 20160808
